FAERS Safety Report 7339602-1 (Version None)
Quarter: 2011Q1

REPORT INFORMATION
  Report Type: 
  Country: None (occurrence: None)
  Receive Date: 20110308
  Receipt Date: 20110225
  Transmission Date: 20110831
  Serious: Yes (Disabling)
  Sender: FDA-Public Use
  Company Number: BW-GILEAD-2011-0036376

PATIENT
  Sex: Female
  Weight: 64 kg

DRUGS (4)
  1. EFAVIRENZ [Suspect]
     Indication: HIV INFECTION
     Route: 048
     Dates: start: 20100215
  2. HYDROCHLOROTHIAZIDE [Concomitant]
     Dates: start: 20071023, end: 20110124
  3. HYDROCHLOROTHIAZIDE [Concomitant]
     Indication: HYPERTENSION
     Dates: start: 20110124
  4. EMTRICITABINE/TENOFOVIR DISOPROXIL FUMARATE [Suspect]
     Indication: HIV INFECTION
     Route: 048
     Dates: start: 20100215

REACTIONS (1)
  - CEREBROVASCULAR ACCIDENT [None]
